FAERS Safety Report 5899359-8 (Version None)
Quarter: 2008Q3

REPORT INFORMATION
  Report Type: 
  Country: None (occurrence: None)
  Receive Date: 20080924
  Receipt Date: 20080911
  Transmission Date: 20090109
  Serious: Yes (Life-Threatening, Hospitalization, Other)
  Sender: FDA-Public Use
  Company Number: 52397

PATIENT
  Age: 53 Year
  Sex: Female

DRUGS (1)
  1. ETOMIDATE [Suspect]
     Dosage: 8 MG

REACTIONS (2)
  - CARDIAC ARREST [None]
  - CENTRAL VENOUS PRESSURE DECREASED [None]
